FAERS Safety Report 10983095 (Version 1)
Quarter: 2015Q2

REPORT INFORMATION
  Report Type: Spontaneous
  Country: NL (occurrence: NL)
  Receive Date: 20150403
  Receipt Date: 20150403
  Transmission Date: 20150821
  Serious: Yes (Hospitalization)
  Sender: FDA-Public Use
  Company Number: NL-WATSON-2015-07026

PATIENT
  Age: 65 Year
  Sex: Female
  Weight: 98 kg

DRUGS (5)
  1. FENPROCOUMON [Suspect]
     Active Substance: PHENPROCOUMON
     Indication: MYOCARDIAL INFARCTION
     Dosage: 1 DF, UNKNOWN (ACCORDING TO SPECIFICATIONS THROMBOSIS)
     Route: 048
     Dates: start: 20101101
  2. LERCANIDIPINE [Suspect]
     Active Substance: LERCANIDIPINE
     Indication: MYOCARDIAL INFARCTION
     Dosage: 1 DF, UNKNOWN
     Route: 048
     Dates: start: 20101101
  3. SOTALOL. [Suspect]
     Active Substance: SOTALOL
     Indication: ATRIAL FIBRILLATION
     Dosage: 1 DF, UNKNOWN (OF 3 PER DAY TO 2X HALF)
     Route: 048
     Dates: start: 20101101
  4. FUROSEMIDE. [Suspect]
     Active Substance: FUROSEMIDE
     Indication: MYOCARDIAL INFARCTION
     Dosage: 40 MG, BID
     Route: 048
     Dates: start: 20101101
  5. PERINDOPRIL [Suspect]
     Active Substance: PERINDOPRIL
     Indication: MYOCARDIAL INFARCTION
     Dosage: 1 DF, UNK
     Route: 048
     Dates: start: 20101101

REACTIONS (9)
  - Memory impairment [Not Recovered/Not Resolved]
  - Hypertension [Not Recovered/Not Resolved]
  - Weight increased [Not Recovered/Not Resolved]
  - Fatigue [Not Recovered/Not Resolved]
  - Sleep disorder [Not Recovered/Not Resolved]
  - Depressed mood [Not Recovered/Not Resolved]
  - Renal impairment [Not Recovered/Not Resolved]
  - Blood potassium increased [Not Recovered/Not Resolved]
  - Oedema peripheral [Not Recovered/Not Resolved]

NARRATIVE: CASE EVENT DATE: 20110301
